FAERS Safety Report 7449255-X (Version None)
Quarter: 2011Q2

REPORT INFORMATION
  Report Type: 
  Country: None (occurrence: None)
  Receive Date: 20110502
  Receipt Date: 20110329
  Transmission Date: 20111010
  Serious: Yes (Hospitalization, Other)
  Sender: FDA-Public Use
  Company Number: US-BAYER-201041684NA

PATIENT
  Age: 47 Year
  Sex: Female
  Weight: 81.633 kg

DRUGS (9)
  1. LAMICTAL [Concomitant]
  2. XANAX [Concomitant]
  3. CELEXA [Concomitant]
  4. IRON SUPPLEMENTS [Concomitant]
  5. NIFEDIPINE [Concomitant]
  6. LOPRESSOR [Concomitant]
  7. SEROQUEL [Concomitant]
  8. YAZ [Suspect]
     Indication: PRODUCT USED FOR UNKNOWN INDICATION
     Route: 048
  9. VASOTEC [ENALAPRILAT] [Concomitant]

REACTIONS (2)
  - DEEP VEIN THROMBOSIS [None]
  - PULMONARY EMBOLISM [None]
